FAERS Safety Report 13585501 (Version 3)
Quarter: 2018Q2

REPORT INFORMATION
  Report Type: Report from Study
  Country: US (occurrence: US)
  Receive Date: 20170526
  Receipt Date: 20180412
  Transmission Date: 20180711
  Serious: Yes (Other)
  Sender: FDA-Public Use
  Company Number: US-BAYER-2016-198515

PATIENT
  Age: 68 Year
  Sex: Male

DRUGS (2)
  1. NEXAVAR [Suspect]
     Active Substance: SORAFENIB
     Indication: METASTASES TO BONE
     Dosage: 400 MG, BID
     Route: 048
     Dates: start: 20160909
  2. NEXAVAR [Suspect]
     Active Substance: SORAFENIB
     Indication: METASTASES TO LUNG
     Dosage: 200 MG, BID
     Route: 048
     Dates: start: 2016, end: 201705

REACTIONS (8)
  - Disease progression [None]
  - Surgery [None]
  - Vision blurred [Not Recovered/Not Resolved]
  - Drug ineffective [None]
  - Underdose [None]
  - Arthralgia [Recovering/Resolving]
  - Fatigue [None]
  - Off label use [None]

NARRATIVE: CASE EVENT DATE: 2017
